FAERS Safety Report 15020520 (Version 1)
Quarter: 2018Q2

REPORT INFORMATION
  Report Type: Spontaneous
  Country: SE (occurrence: SE)
  Receive Date: 20180618
  Receipt Date: 20180618
  Transmission Date: 20180711
  Serious: Yes (Other)
  Sender: FDA-Public Use
  Company Number: SE-SCIEGEN PHARMACEUTICALS INC-2018SCILIT00375

PATIENT

DRUGS (3)
  1. QUETIAPINE. [Suspect]
     Active Substance: QUETIAPINE
     Dosage: 400 MG, QD OVER 12 DAYS
  2. VALPROIC ACID. [Interacting]
     Active Substance: VALPROIC ACID
     Indication: PRODUCT USED FOR UNKNOWN INDICATION
     Dosage: 700 MG, QD
     Route: 065
  3. QUETIAPINE. [Suspect]
     Active Substance: QUETIAPINE
     Indication: PRODUCT USED FOR UNKNOWN INDICATION
     Dosage: 50 MG, QD
     Route: 065

REACTIONS (7)
  - Physical assault [Unknown]
  - Speech disorder [Unknown]
  - Drug interaction [Unknown]
  - Pain [Unknown]
  - Overdose [Unknown]
  - Depressed level of consciousness [Unknown]
  - Gait disturbance [Unknown]
